FAERS Safety Report 4647801-2 (Version None)
Quarter: 2005Q2

REPORT INFORMATION
  Report Type: 
  Country: None (occurrence: None)
  Receive Date: 20050426
  Receipt Date: 20050412
  Transmission Date: 20051028
  Serious: Yes (Life-Threatening)
  Sender: FDA-Public Use
  Company Number: 05P-167-0297189-00

PATIENT
  Age: 63 Year
  Sex: Male

DRUGS (4)
  1. WARFARIN SODIUM [Suspect]
     Indication: ATRIAL FIBRILLATION
     Dosage: 5.75 MG, 1 IN 1 D, PER ORAL
     Route: 048
     Dates: start: 19960209
  2. ZOTON (LANSOPRAZOLE) (LANOSPRAZOLE) (LANSOPRAZOLE) [Suspect]
     Indication: DYSPEPSIA
     Dosage: 30 MG, 1 IN 1 D PER ORAL
     Route: 048
     Dates: start: 20050307
  3. AMIODARONE [Concomitant]
  4. AMLODIPINE [Concomitant]

REACTIONS (5)
  - DIARRHOEA [None]
  - DYSPEPSIA [None]
  - GASTRITIS [None]
  - INTERNATIONAL NORMALISED RATIO INCREASED [None]
  - NAUSEA [None]
